FAERS Safety Report 14345920 (Version 2)
Quarter: 2018Q1

REPORT INFORMATION
  Report Type: Spontaneous
  Country: CH (occurrence: CH)
  Receive Date: 20180103
  Receipt Date: 20180109
  Transmission Date: 20180509
  Serious: Yes (Life-Threatening, Hospitalization, Other)
  Sender: FDA-Public Use
  Company Number: CH-OTSUKA-2017_028678

PATIENT
  Age: 80 Year
  Sex: Male

DRUGS (8)
  1. BACTRIM [Suspect]
     Active Substance: SULFAMETHOXAZOLE\TRIMETHOPRIM
     Indication: ANTIBIOTIC PROPHYLAXIS
     Dosage: 800 MG, 1 IN 2 DAY
     Route: 042
     Dates: start: 20171117
  2. TAVANIC [Suspect]
     Active Substance: LEVOFLOXACIN
     Indication: ANTIBIOTIC PROPHYLAXIS
     Dosage: 500 MG, 1 IN 1 DAY
     Route: 048
     Dates: start: 20171117
  3. PANTOPRAZOL SANDOZ [Concomitant]
     Indication: PRODUCT USED FOR UNKNOWN INDICATION
     Dosage: 20 MG, 1 IN 1 DAY
     Route: 048
  4. DACOGEN [Suspect]
     Active Substance: DECITABINE
     Indication: ACUTE MYELOID LEUKAEMIA
     Dosage: 20 MG/M2, 1 IN 1 DAY
     Route: 042
     Dates: start: 20171120, end: 20171124
  5. CALCIMAGON D3 [Concomitant]
     Active Substance: CALCIUM\CHOLECALCIFEROL
     Indication: PRODUCT USED FOR UNKNOWN INDICATION
     Dosage: 1 DOSE(S), 1 IN 1 DAY
     Route: 048
  6. ACIDUM FOLICUM STREULI [Concomitant]
     Active Substance: FOLIC ACID
     Indication: PRODUCT USED FOR UNKNOWN INDICATION
     Dosage: 5 MG, 1 IN 1 DAY
     Route: 048
  7. DIFLUCAN [Suspect]
     Active Substance: FLUCONAZOLE
     Indication: ANTIBIOTIC PROPHYLAXIS
     Dosage: 400 MG, 1 IN 1 DAY
     Route: 048
     Dates: start: 20171117
  8. ZOLDORM [Concomitant]
     Active Substance: ZOLPIDEM TARTRATE
     Indication: PRODUCT USED FOR UNKNOWN INDICATION
     Dosage: 5 MG, 1 IN 1 DAY
     Route: 048

REACTIONS (5)
  - Fall [Unknown]
  - Pancytopenia [Recovered/Resolved]
  - Cough [Recovered/Resolved]
  - Femoral neck fracture [Unknown]
  - Pyrexia [Recovered/Resolved]

NARRATIVE: CASE EVENT DATE: 20171124
